FAERS Safety Report 9931319 (Version 1)
Quarter: 2014Q1

REPORT INFORMATION
  Report Type: Spontaneous
  Country: CH (occurrence: CH)
  Receive Date: 20140228
  Receipt Date: 20140228
  Transmission Date: 20141002
  Serious: Yes (Hospitalization)
  Sender: FDA-Public Use
  Company Number: CH-BIOGENIDEC-2014BI018219

PATIENT
  Age: 44 Year
  Sex: Female

DRUGS (1)
  1. TYSABRI [Suspect]
     Indication: MULTIPLE SCLEROSIS
     Route: 042
     Dates: start: 2012

REACTIONS (5)
  - Diarrhoea [Recovered/Resolved]
  - Acute tonsillitis [Recovered/Resolved]
  - Abdominal pain upper [Recovered/Resolved]
  - Pyrexia [Recovered/Resolved]
  - Clostridium difficile colitis [Recovered/Resolved]
